FAERS Safety Report 9698579 (Version 1)
Quarter: 2013Q4

REPORT INFORMATION
  Report Type: Spontaneous
  Country: US (occurrence: None)
  Receive Date: 20131115
  Receipt Date: 20131115
  Transmission Date: 20140711
  Serious: Yes (Death)
  Sender: FDA-Public Use
  Company Number: ACET20130029

PATIENT
  Age: 34 Year
  Sex: Female

DRUGS (2)
  1. Q-PAP [Suspect]
     Indication: BACK PAIN
     Dosage: UNKNOWN, DAILY, ORAL
     Route: 048
  2. EMTRICITABINE [Suspect]
     Indication: HIV INFECTION
     Dosage: UNKNOWN, UNKNOWN, UNKNOWN

REACTIONS (9)
  - Lactic acidosis [None]
  - Somnolence [None]
  - Confusional state [None]
  - Tachycardia [None]
  - Aspartate aminotransferase increased [None]
  - Alanine aminotransferase increased [None]
  - Hypotension [None]
  - Pulseless electrical activity [None]
  - Cardiac arrest [None]
